FAERS Safety Report 5918989-8 (Version None)
Quarter: 2008Q4

REPORT INFORMATION
  Report Type: 
  Country: None (occurrence: None)
  Receive Date: 20081015
  Receipt Date: 20081013
  Transmission Date: 20090506
  Serious: Yes (Other)
  Sender: FDA-Public Use
  Company Number: FR-BRISTOL-MYERS SQUIBB COMPANY-14368906

PATIENT
  Age: 39 Year
  Sex: Male

DRUGS (4)
  1. ABILIFY [Suspect]
     Route: 048
     Dates: start: 20030101
  2. LEPONEX [Suspect]
     Dosage: TAKEN TWICE A TIME (MORNING AND EVENING).
     Route: 048
     Dates: start: 20030101
  3. NOCTRAN [Concomitant]
     Dosage: TAKEN DAILY (ON EVENING BEFORE BEDTIME).
     Route: 048
     Dates: start: 20030101
  4. DEPAKENE [Concomitant]
     Dosage: TAKEN TWICE A TIME (MORNING AND EVENING).
     Route: 048
     Dates: start: 20030101

REACTIONS (1)
  - LEUKOCYTOSIS [None]
